FAERS Safety Report 9746793 (Version 1)
Quarter: 2013Q4

REPORT INFORMATION
  Report Type: Spontaneous
  Country: US (occurrence: US)
  Receive Date: 20131211
  Receipt Date: 20131211
  Transmission Date: 20140711
  Serious: Yes (Other)
  Sender: FDA-Public Use
  Company Number: US-TEVA-449269USA

PATIENT
  Age: 49 Year
  Sex: Female

DRUGS (2)
  1. COPAXONE [Suspect]
     Indication: RELAPSING-REMITTING MULTIPLE SCLEROSIS
     Dates: start: 2011
  2. COPAXONE [Suspect]
     Dates: start: 20130802

REACTIONS (1)
  - Primary progressive multiple sclerosis [Not Recovered/Not Resolved]
